FAERS Safety Report 9590604 (Version 1)
Quarter: 2013Q4

REPORT INFORMATION
  Report Type: Spontaneous
  Country: US (occurrence: US)
  Receive Date: 20131003
  Receipt Date: 20131003
  Transmission Date: 20140711
  Serious: No
  Sender: FDA-Public Use
  Company Number: US-AMGEN-USASP2012078270

PATIENT
  Age: 70 Year
  Sex: Female
  Weight: 68.02 kg

DRUGS (8)
  1. ENBREL [Suspect]
     Indication: PSORIASIS
     Dosage: 50 MG, QWK
     Route: 058
  2. ENBREL [Suspect]
     Indication: ARTHRITIS
  3. FOLIC ACID [Concomitant]
     Dosage: UNK
  4. MAGNESIUM [Concomitant]
     Dosage: 200 MG, UNK
  5. B-12 [Concomitant]
     Dosage: 1000 MCG,UNK
  6. TURMERIC                           /01079602/ [Concomitant]
     Dosage: 500 MG, UNK
  7. GINGER                             /01646602/ [Concomitant]
     Dosage: 500 MG, UNK
  8. METHOTREXATE [Concomitant]
     Dosage: INJ 50 MG/2ML

REACTIONS (4)
  - Arthralgia [Unknown]
  - Back pain [Unknown]
  - Musculoskeletal pain [Unknown]
  - Feeling abnormal [Unknown]
